FAERS Safety Report 4837249-X (Version None)
Quarter: 2005Q4

REPORT INFORMATION
  Report Type: 
  Country: None (occurrence: None)
  Receive Date: 20051122
  Receipt Date: 20051109
  Transmission Date: 20060501
  Serious: Yes (Death, Life-Threatening)
  Sender: FDA-Public Use
  Company Number: US-2005-020638

PATIENT
  Age: 66 Year
  Sex: Male

DRUGS (7)
  1. ULTRAVIST 370 [Suspect]
     Indication: COMPUTERISED TOMOGRAM
     Dosage: 120 ML, 1 DOSE, INTRAVENOUS
     Route: 042
     Dates: start: 20051002, end: 20051002
  2. DAILY MULTIVITAMIN (VITAMINS NOS) [Concomitant]
  3. FEROUS SULFATE (FERROUS SULFATE) [Concomitant]
  4. LOVENOX [Concomitant]
  5. HYDROCHLOROTHIAZIDE [Concomitant]
  6. LISINOPRIL [Concomitant]
  7. DARVOCET-N (DEXTROPROPOXYPHENE NAPSILATE) [Concomitant]

REACTIONS (2)
  - CARDIO-RESPIRATORY ARREST [None]
  - PULMONARY EMBOLISM [None]
